FAERS Safety Report 4407163-2 (Version None)
Quarter: 2004Q3

REPORT INFORMATION
  Report Type: 
  Country: None (occurrence: None)
  Receive Date: 20040721
  Receipt Date: 20040713
  Transmission Date: 20050211
  Serious: Yes (Hospitalization)
  Sender: FDA-Public Use
  Company Number: 2004047318

PATIENT
  Age: 52 Year
  Sex: Male
  Weight: 83.9154 kg

DRUGS (4)
  1. BENADRYL [Suspect]
     Indication: INSOMNIA
     Dosage: 3 KAPSEALS QD, ORAL
     Route: 048
  2. IBUPROFEN [Concomitant]
  3. OXYCOCET (OXYODONE HYDROCHLORIDE, PARACETAMOL) [Concomitant]
  4. BENAZEPRIL HCL [Concomitant]

REACTIONS (4)
  - INCOHERENT [None]
  - JAUNDICE [None]
  - RENAL FAILURE [None]
  - URETHRAL OBSTRUCTION [None]
